FAERS Safety Report 16647904 (Version 1)
Quarter: 2019Q3

REPORT INFORMATION
  Report Type: Spontaneous
  Country: US (occurrence: US)
  Receive Date: 20190729
  Receipt Date: 20190729
  Transmission Date: 20191004
  Serious: Yes (Hospitalization)
  Sender: FDA-Public Use
  Company Number: None

PATIENT
  Age: 49 Year
  Sex: Female
  Weight: 63.5 kg

DRUGS (2)
  1. NEUPOGEN [Concomitant]
     Active Substance: FILGRASTIM
     Dates: start: 20190621
  2. NEUPOGEN [Suspect]
     Active Substance: FILGRASTIM
     Route: 058

REACTIONS (1)
  - Infection [None]

NARRATIVE: CASE EVENT DATE: 20190722
